FAERS Safety Report 12802500 (Version 7)
Quarter: 2018Q2

REPORT INFORMATION
  Report Type: Spontaneous
  Country: US (occurrence: US)
  Receive Date: 20161003
  Receipt Date: 20180507
  Transmission Date: 20180711
  Serious: No
  Sender: FDA-Public Use
  Company Number: US-PFIZER INC-2016459357

PATIENT
  Age: 44 Year
  Sex: Female
  Weight: 71 kg

DRUGS (6)
  1. GENOTROPIN [Suspect]
     Active Substance: SOMATROPIN
     Dosage: 0.5 MG, 6 DAYS/WEEK
  2. THYROID [Concomitant]
     Active Substance: LEVOTHYROXINE\LIOTHYRONINE
     Indication: HORMONE REPLACEMENT THERAPY
     Dosage: UNK, 1X/DAY
  3. GENOTROPIN [Suspect]
     Active Substance: SOMATROPIN
     Indication: HORMONE THERAPY
     Dosage: UNK
     Dates: start: 2010
  4. HYDROCORTISONE. [Concomitant]
     Active Substance: HYDROCORTISONE
     Indication: HORMONE REPLACEMENT THERAPY
     Dosage: 25 MG, DAILY (10 MG IN MORNING, 10 MG AT NOON AND 5 MG AT 3)
     Route: 048
  5. GENOTROPIN [Suspect]
     Active Substance: SOMATROPIN
     Dosage: 0.6 MG, (6 DAYS/WEEK)
     Dates: start: 20100217, end: 20180331
  6. GENOTROPIN [Suspect]
     Active Substance: SOMATROPIN
     Dosage: 0.6 MG, DAILY
     Route: 058
     Dates: start: 20100210

REACTIONS (8)
  - Photosensitivity reaction [Not Recovered/Not Resolved]
  - Intentional product use issue [Unknown]
  - Drug dose omission [Unknown]
  - Fall [Recovered/Resolved]
  - Hypoaesthesia [Unknown]
  - Headache [Not Recovered/Not Resolved]
  - Head injury [Recovering/Resolving]
  - Device breakage [Unknown]

NARRATIVE: CASE EVENT DATE: 201606
